FAERS Safety Report 4709251-X (Version None)
Quarter: 2005Q3

REPORT INFORMATION
  Report Type: 
  Country: None (occurrence: None)
  Receive Date: 20050706
  Receipt Date: 20050620
  Transmission Date: 20060218
  Serious: Yes (Hospitalization)
  Sender: FDA-Public Use
  Company Number: DSA_26582_2005

PATIENT
  Age: 84 Year
  Sex: Female

DRUGS (7)
  1. LORAZEPAM [Suspect]
     Dosage: DF UNK PO
     Route: 048
     Dates: end: 20050507
  2. CORDARONE [Suspect]
     Indication: ATRIAL FIBRILLATION
     Dosage: 200 MG Q DAY PO
     Route: 048
     Dates: end: 20050507
  3. CORDARONE [Suspect]
     Indication: ATRIAL FLUTTER
     Dosage: 200 MG Q DAY PO
     Route: 048
     Dates: end: 20050507
  4. ATARAX [Suspect]
     Dosage: DF UNK UNK
     Dates: end: 20050507
  5. LESCOL [Suspect]
     Dosage: DF UNK PO
     Route: 048
     Dates: end: 20050507
  6. LODALES [Suspect]
     Dosage: DF UNK PO
     Route: 048
     Dates: end: 20050507
  7. PREVISCAN [Suspect]
     Dosage: 20 MG UNK PO
     Route: 048
     Dates: end: 20050506

REACTIONS (5)
  - DRUG INTERACTION [None]
  - FALL [None]
  - INTERNATIONAL NORMALISED RATIO INCREASED [None]
  - LOSS OF CONSCIOUSNESS [None]
  - SUBDURAL HAEMATOMA [None]
